FAERS Safety Report 20530305 (Version 7)
Quarter: 2022Q2

REPORT INFORMATION
  Report Type: Spontaneous
  Country: US (occurrence: US)
  Receive Date: 20220301
  Receipt Date: 20220428
  Transmission Date: 20220721
  Serious: Yes (Other)
  Sender: FDA-Public Use
  Company Number: US-GLAXOSMITHKLINE-US2022AMR034553

PATIENT
  Age: 45 Year
  Sex: Female

DRUGS (1)
  1. ZEJULA [Suspect]
     Active Substance: NIRAPARIB
     Indication: Ovarian cancer
     Dosage: 200 MG, QD

REACTIONS (10)
  - Choking [Unknown]
  - Foreign body in throat [Unknown]
  - Back pain [Unknown]
  - Bleeding time prolonged [Unknown]
  - Retching [Unknown]
  - Cough [Unknown]
  - Oropharyngeal pain [Unknown]
  - Product use complaint [Not Recovered/Not Resolved]
  - Product dose omission issue [Unknown]
  - Product complaint [Unknown]

NARRATIVE: CASE EVENT DATE: 20220318
